FAERS Safety Report 8621336-4 (Version None)
Quarter: 2012Q3

REPORT INFORMATION
  Report Type: 
  Country: None (occurrence: None)
  Receive Date: 20120824
  Receipt Date: 20120816
  Transmission Date: 20120928
  Serious: No
  Sender: FDA-Public Use
  Company Number: US-TEVA-354362USA

PATIENT
  Sex: Male

DRUGS (2)
  1. REQUIP [Concomitant]
  2. AZILECT [Suspect]

REACTIONS (1)
  - RASH [None]
